FAERS Safety Report 19822097 (Version 1)
Quarter: 2021Q3

REPORT INFORMATION
  Report Type: Spontaneous
  Country: US (occurrence: US)
  Receive Date: 20210913
  Receipt Date: 20210913
  Transmission Date: 20211014
  Serious: No
  Sender: FDA-Public Use
  Company Number: US-GLOBAL BLOOD THERAPEUTICS INC-US-GBT-21-02154

PATIENT
  Age: 23 Year
  Sex: Female

DRUGS (1)
  1. OXBRYTA [Suspect]
     Active Substance: VOXELOTOR
     Indication: SICKLE CELL DISEASE
     Route: 048
     Dates: start: 20210615, end: 20210617

REACTIONS (7)
  - Product use complaint [Unknown]
  - Intentional product misuse [Unknown]
  - Insomnia [Recovered/Resolved]
  - Restlessness [Unknown]
  - Therapy cessation [Unknown]
  - Sleep disorder [Recovered/Resolved]
  - Off label use [Unknown]

NARRATIVE: CASE EVENT DATE: 20210615
